FAERS Safety Report 9419512 (Version 4)
Quarter: 2013Q3

REPORT INFORMATION
  Report Type: Spontaneous
  Country: GB (occurrence: GB)
  Receive Date: 20130725
  Receipt Date: 20130821
  Transmission Date: 20140515
  Serious: Yes (Other)
  Sender: FDA-Public Use
  Company Number: GB-PFIZER INC-2013214065

PATIENT
  Age: 36 Year
  Sex: Female

DRUGS (6)
  1. PREGABALIN [Suspect]
     Indication: PAIN IN EXTREMITY
     Dosage: 300 MG, 2X/DAY
     Route: 048
  2. OLANZAPINE [Suspect]
     Indication: SCHIZOPHRENIA
     Dosage: 15 MG, 1X/DAY
  3. OMEPRAZOLE [Suspect]
     Dosage: 30 MG, UNK
     Route: 048
  4. DIAZEPAM [Suspect]
     Dosage: 10 MG, 3X/DAY
     Route: 048
  5. SUBUTEX [Suspect]
     Indication: SUBSTANCE ABUSE
     Dosage: 14 MG, 1X/DAY
     Route: 060
  6. ZOPICLONE [Suspect]
     Dosage: 15 MG, 1X/DAY
     Route: 048

REACTIONS (1)
  - Drug abuse [Unknown]
